FAERS Safety Report 6414094-5 (Version None)
Quarter: 2009Q4

REPORT INFORMATION
  Report Type: 
  Country: None (occurrence: None)
  Receive Date: 20091026
  Receipt Date: 20091020
  Transmission Date: 20100525
  Serious: Yes (Other)
  Sender: FDA-Public Use
  Company Number: US-JNJFOC-20091006397

PATIENT
  Sex: Female
  Weight: 83.92 kg

DRUGS (14)
  1. SIMPONI [Suspect]
     Route: 058
  2. SIMPONI [Suspect]
     Route: 058
  3. SIMPONI [Suspect]
     Indication: RHEUMATOID ARTHRITIS
     Route: 058
  4. PREDNISONE TAB [Concomitant]
     Indication: RHEUMATOID ARTHRITIS
  5. DIOVAN [Concomitant]
     Indication: HYPERTENSION
  6. METHOTREXATE [Concomitant]
     Indication: RHEUMATOID ARTHRITIS
  7. ACTONEL [Concomitant]
     Indication: BONE DISORDER
  8. CALCIUM [Concomitant]
     Indication: VITAMIN SUPPLEMENTATION
  9. ONE A DAY VITAMINS [Concomitant]
     Indication: VITAMIN SUPPLEMENTATION
  10. VITAMIN D [Concomitant]
     Indication: VITAMIN SUPPLEMENTATION
  11. INSULIN [Concomitant]
     Indication: TYPE 1 DIABETES MELLITUS
  12. ASPIRIN [Concomitant]
  13. ONE A DAY VITAMINS [Concomitant]
  14. FOLIC ACID [Concomitant]

REACTIONS (3)
  - DRUG INEFFECTIVE [None]
  - NASOPHARYNGITIS [None]
  - PULMONARY OEDEMA [None]
